FAERS Safety Report 22910674 (Version 3)
Quarter: 2025Q1

REPORT INFORMATION
  Report Type: Other
  Country: CA (occurrence: CA)
  Receive Date: 20230906
  Receipt Date: 20250303
  Transmission Date: 20250408
  Serious: Yes (Other)
  Sender: APOTEX
  Company Number: CA-APOTEX-2023AP012927

PATIENT
  Age: 55 Year
  Sex: Female
  Weight: 74 kg

DRUGS (7)
  1. FULVESTRANT [Suspect]
     Active Substance: FULVESTRANT
     Indication: Product used for unknown indication
     Route: 065
  2. IBRANCE [Suspect]
     Active Substance: PALBOCICLIB
     Indication: Breast cancer metastatic
     Route: 065
  3. IBRANCE [Suspect]
     Active Substance: PALBOCICLIB
     Route: 048
  4. LIORESAL [Concomitant]
     Active Substance: BACLOFEN
     Indication: Product used for unknown indication
     Dosage: 5 MILLIGRAM, QD
     Route: 048
  5. METHADONE [Concomitant]
     Active Substance: METHADONE HYDROCHLORIDE
     Indication: Product used for unknown indication
     Route: 065
  6. METOCLOPRAMIDE [Concomitant]
     Active Substance: METOCLOPRAMIDE
     Indication: Product used for unknown indication
     Route: 065
  7. MOTILIUM [Concomitant]
     Active Substance: DOMPERIDONE
     Indication: Product used for unknown indication
     Dosage: 10 MILLIGRAM, TID
     Route: 048

REACTIONS (11)
  - Aortic arteriosclerosis [Unknown]
  - Bone disorder [Unknown]
  - Mediastinal fibrosis [Unknown]
  - Sinus disorder [Unknown]
  - Thyroid calcification [Unknown]
  - Osteosclerosis [Unknown]
  - Spinal compression fracture [Unknown]
  - Weight increased [Unknown]
  - Weight decreased [Unknown]
  - Arthritis [Unknown]
  - Insomnia [Unknown]
